FAERS Safety Report 4654651-X (Version None)
Quarter: 2005Q2

REPORT INFORMATION
  Report Type: 
  Country: None (occurrence: None)
  Receive Date: 20050504
  Receipt Date: 20050504
  Transmission Date: 20051028
  Serious: Yes (Life-Threatening)
  Sender: FDA-Public Use
  Company Number: None

PATIENT
  Age: 86 Year
  Sex: Male
  Weight: 74.9 kg

DRUGS (3)
  1. WARFARIN   2.5MG [Suspect]
     Indication: ATRIAL FIBRILLATION
     Dosage: 2.5MG   DAILY   ORAL
     Route: 048
  2. WARFARIN   2.5MG [Suspect]
     Indication: DEEP VEIN THROMBOSIS
     Dosage: 2.5MG   DAILY   ORAL
     Route: 048
  3. WARFARIN   2.5MG [Suspect]
     Indication: PULMONARY EMBOLISM
     Dosage: 2.5MG   DAILY   ORAL
     Route: 048

REACTIONS (6)
  - ATRIAL FIBRILLATION [None]
  - BACK PAIN [None]
  - BLOOD PRESSURE SYSTOLIC DECREASED [None]
  - GASTROINTESTINAL HAEMORRHAGE [None]
  - HYPOTENSION [None]
  - PALLOR [None]
